FAERS Safety Report 6575003-1 (Version None)
Quarter: 2010Q1

REPORT INFORMATION
  Report Type: 
  Country: None (occurrence: None)
  Receive Date: 20100209
  Receipt Date: 20100126
  Transmission Date: 20100710
  Serious: Yes (Hospitalization)
  Sender: FDA-Public Use
  Company Number: DE-AMGEN-US389188

PATIENT
  Sex: Female
  Weight: 75 kg

DRUGS (6)
  1. ENBREL [Suspect]
     Indication: RHEUMATOID ARTHRITIS
     Route: 058
     Dates: start: 20090727, end: 20091109
  2. IBANDRONIC ACID [Concomitant]
     Route: 065
  3. CALCILAC [Concomitant]
     Route: 065
  4. METEX [Concomitant]
     Indication: RHEUMATOID ARTHRITIS
     Route: 058
     Dates: start: 20080101
  5. PREDNISOLONE [Concomitant]
     Indication: RHEUMATOID ARTHRITIS
     Route: 048
     Dates: start: 20090101, end: 20090901
  6. PREDNISOLONE [Concomitant]
     Route: 048
     Dates: start: 20090901

REACTIONS (4)
  - DEHYDRATION [None]
  - KLEBSIELLA INFECTION [None]
  - URINARY TRACT INFECTION [None]
  - VENOUS THROMBOSIS LIMB [None]
